FAERS Safety Report 10174786 (Version 1)
Quarter: 2014Q2

REPORT INFORMATION
  Report Type: Spontaneous
  Country: US (occurrence: None)
  Receive Date: 20140416
  Receipt Date: 20140416
  Transmission Date: 20141212
  Serious: Yes (Hospitalization)
  Sender: FDA-Public Use
  Company Number: 163-POMAL-14014570

PATIENT
  Age: 88 Year
  Sex: Female

DRUGS (1)
  1. POMALYST [Suspect]
     Indication: PLASMA CELL MYELOMA
     Dosage: 09/ /2013-TEMPORARILY INTERRUPTED, 2MG, 21 IN 28 D, PO
     Route: 048
     Dates: start: 201309

REACTIONS (3)
  - Diarrhoea [None]
  - Vomiting [None]
  - Asthenia [None]
